FAERS Safety Report 5926117-8 (Version None)
Quarter: 2008Q4

REPORT INFORMATION
  Report Type: 
  Country: None (occurrence: None)
  Receive Date: 20081021
  Receipt Date: 20081021
  Transmission Date: 20090506
  Serious: Yes (Death, Hospitalization, Other)
  Sender: FDA-Public Use
  Company Number: TR-ABBOTT-08P-161-0458537-00

PATIENT
  Sex: Female
  Weight: 55 kg

DRUGS (1)
  1. TARKA [Suspect]
     Indication: HYPERTENSION
     Route: 048
     Dates: start: 20080601, end: 20080611

REACTIONS (6)
  - ASPIRATION [None]
  - BRADYCARDIA [None]
  - CEREBRAL HYPOPERFUSION [None]
  - CEREBROVASCULAR ACCIDENT [None]
  - HYPOTENSION [None]
  - VOMITING [None]
